FAERS Safety Report 8580987-6 (Version None)
Quarter: 2012Q3

REPORT INFORMATION
  Report Type: 
  Country: None (occurrence: None)
  Receive Date: 20120809
  Receipt Date: 20120806
  Transmission Date: 20120928
  Serious: No
  Sender: FDA-Public Use
  Company Number: US-PFIZER INC-2012190764

PATIENT
  Sex: Female

DRUGS (2)
  1. LYRICA [Suspect]
     Indication: OSTEOARTHRITIS
     Dosage: 75 MG,
     Dates: start: 20120101
  2. LYRICA [Suspect]
     Indication: FIBROMYALGIA

REACTIONS (3)
  - SOMNOLENCE [None]
  - DRUG INTOLERANCE [None]
  - OEDEMA PERIPHERAL [None]
